FAERS Safety Report 7654615-8 (Version None)
Quarter: 2011Q3

REPORT INFORMATION
  Report Type: 
  Country: None (occurrence: None)
  Receive Date: 20110803
  Receipt Date: 20110725
  Transmission Date: 20111222
  Serious: Yes (Hospitalization, Other)
  Sender: FDA-Public Use
  Company Number: CZ-ASTRAZENECA-2011SE44332

PATIENT
  Age: 28531 Day
  Sex: Male

DRUGS (11)
  1. SAXAGLIPTIN CODE NOT BROKEN [Suspect]
     Indication: TYPE 2 DIABETES MELLITUS
     Dosage: DAILY
     Route: 048
     Dates: start: 20100930
  2. LEVEMIR [Suspect]
     Indication: TYPE 2 DIABETES MELLITUS
     Dates: start: 20110329
  3. STATIN [Concomitant]
  4. BETA BLOCKER [Concomitant]
  5. DIURETICS [Concomitant]
  6. ASPIRIN [Concomitant]
  7. NOVORAPID [Suspect]
     Indication: TYPE 2 DIABETES MELLITUS
     Dates: start: 20110125
  8. TANATRIL [Suspect]
  9. ANGIOTENSIN CONVERTING ENZYME (ACE) INHIBITOR [Concomitant]
  10. CALCIUM ANTAGONIST [Concomitant]
  11. METOPROLOL SUCCINATE [Suspect]
     Route: 048

REACTIONS (2)
  - CHEST PAIN [None]
  - RENAL FAILURE CHRONIC [None]
